FAERS Safety Report 5175192-X (Version None)
Quarter: 2006Q4

REPORT INFORMATION
  Report Type: 
  Country: None (occurrence: None)
  Receive Date: 20061206
  Receipt Date: 20061129
  Transmission Date: 20070319
  Serious: Yes (Death, Other)
  Sender: FDA-Public Use
  Company Number: 2006SP007340

PATIENT
  Age: 62 Year
  Sex: Female
  Weight: 73 kg

DRUGS (8)
  1. TEMODAL [Suspect]
     Indication: DRUG USE FOR UNKNOWN INDICATION
     Dosage: 130 MG; QD; PO
     Route: 048
  2. DILANTIN (CON.) [Concomitant]
  3. VASOTEC (CON.) [Concomitant]
  4. HYDROCHLOROTHIAZIDE (CON.) [Concomitant]
  5. RENEDIL (CON.) [Concomitant]
  6. RADIATION (CON.) [Concomitant]
  7. ATENOLOL (CON.) [Concomitant]
  8. LIPITOR (CON.) [Concomitant]

REACTIONS (1)
  - PANCYTOPENIA [None]
